FAERS Safety Report 9802429 (Version 2)
Quarter: 2014Q1

REPORT INFORMATION
  Report Type: Spontaneous
  Country: DE (occurrence: DE)
  Receive Date: 20140107
  Receipt Date: 20140128
  Transmission Date: 20141002
  Serious: Yes (Other)
  Sender: FDA-Public Use
  Company Number: DE-TAKEDA-2014TUS000070

PATIENT
  Age: 89 Year
  Sex: Male
  Weight: 88 kg

DRUGS (5)
  1. ADENURIC [Suspect]
     Indication: GOUTY ARTHRITIS
     Dosage: 80 MG, QD
     Route: 048
     Dates: start: 20131215, end: 20131215
  2. TORASEMID [Concomitant]
     Indication: HYPERTENSION
     Dosage: 10 MG, QD
  3. LISINOPRIL [Concomitant]
     Dosage: 20 MG, QD
  4. TRAMADOL [Concomitant]
     Indication: PAIN
     Dosage: 200 MG, BID
  5. ASS [Concomitant]
     Indication: TRANSIENT ISCHAEMIC ATTACK
     Dosage: 100 MG, QD

REACTIONS (1)
  - Angioedema [Recovered/Resolved]
